FAERS Safety Report 25578076 (Version 1)
Quarter: 2025Q3

REPORT INFORMATION
  Report Type: Spontaneous
  Country: CA (occurrence: CA)
  Receive Date: 20250718
  Receipt Date: 20250718
  Transmission Date: 20251021
  Serious: Yes (Life-Threatening, Other)
  Sender: PFIZER
  Company Number: CA-PFIZER INC-PV202500084171

PATIENT
  Age: 11 Year
  Sex: Female

DRUGS (5)
  1. DOXORUBICIN HYDROCHLORIDE [Suspect]
     Active Substance: DOXORUBICIN HYDROCHLORIDE
     Indication: Acute myelomonocytic leukaemia
  2. CYTARABINE [Suspect]
     Active Substance: CYTARABINE
     Indication: Acute myelomonocytic leukaemia
  3. VINCRISTINE [Suspect]
     Active Substance: VINCRISTINE
     Indication: Acute myelomonocytic leukaemia
  4. VINCRISTINE [Suspect]
     Active Substance: VINCRISTINE
  5. PREDNISOLONE [Suspect]
     Active Substance: PREDNISOLONE
     Indication: Acute myelomonocytic leukaemia

REACTIONS (1)
  - Hidradenitis [Recovered/Resolved]
